FAERS Safety Report 10267041 (Version 1)
Quarter: 2014Q2

REPORT INFORMATION
  Report Type: Spontaneous
  Country: FR (occurrence: FR)
  Receive Date: 20140630
  Receipt Date: 20140630
  Transmission Date: 20141212
  Serious: Yes (Hospitalization)
  Sender: FDA-Public Use
  Company Number: FR-ROCHE-1425182

PATIENT
  Age: 60 Year
  Sex: Male

DRUGS (15)
  1. ROCEPHINE [Suspect]
     Indication: ESCHAR
     Dosage: CEFTRIAXONE SODIUM 1 G THEN 2G/DAY.
     Route: 065
     Dates: start: 20130820, end: 201312
  2. VANCOMYCINE [Suspect]
     Indication: PRODUCT USED FOR UNKNOWN INDICATION
     Dosage: ELECTRIC SYRINGE PUSH
     Route: 042
     Dates: start: 201312
  3. FORTUM [Suspect]
     Indication: ESCHAR
     Route: 042
     Dates: start: 201312
  4. GLUCOPHAGE [Concomitant]
     Route: 065
  5. JANUMET [Concomitant]
  6. LIORESAL [Concomitant]
  7. NEURONTIN (FRANCE) [Concomitant]
  8. NOVONORM [Concomitant]
  9. TAHOR [Concomitant]
  10. PARACETAMOL [Concomitant]
  11. FRAXIPARINE [Concomitant]
  12. CETORNAN [Concomitant]
  13. SPECIAFOLDINE [Concomitant]
  14. TRIFLUCAN [Concomitant]
  15. FLAGYL [Concomitant]

REACTIONS (3)
  - Pulmonary embolism [Unknown]
  - Jugular vein thrombosis [Unknown]
  - Thrombosis in device [Unknown]
